FAERS Safety Report 16484071 (Version 1)
Quarter: 2019Q2

REPORT INFORMATION
  Report Type: Spontaneous
  Country: US (occurrence: US)
  Receive Date: 20190627
  Receipt Date: 20190627
  Transmission Date: 20190711
  Serious: No
  Sender: FDA-Public Use
  Company Number: US-GALDERMA-US18045110

PATIENT
  Age: 25 Year
  Sex: Female

DRUGS (5)
  1. PROACTIV MD ADAPALENE ACNE TREATMENT [Suspect]
     Active Substance: ADAPALENE
     Indication: ACNE PUSTULAR
     Dosage: 0.1%
     Route: 061
     Dates: start: 20181005, end: 20181013
  2. PROACTIV OIL FREE MOISTURE SPF 15 [Concomitant]
     Indication: ACNE PUSTULAR
     Route: 061
     Dates: start: 20181005, end: 20181013
  3. PROACTIV MD DAILY OIL CONTROL SPF 30 [Suspect]
     Active Substance: AVOBENZONE\OCTISALATE\OCTOCRYLENE
     Indication: ACNE PUSTULAR
     Route: 061
     Dates: start: 20181005, end: 20181013
  4. PROACTIV MD DEEP CLEANSING FACE WASH [Concomitant]
     Active Substance: COSMETICS
     Indication: ACNE PUSTULAR
     Route: 061
     Dates: start: 20181005, end: 20181013
  5. NEUTROGENA [Concomitant]
     Active Substance: COSMETICS

REACTIONS (5)
  - Dry skin [Recovering/Resolving]
  - Rash macular [Recovering/Resolving]
  - Overdose [Recovered/Resolved]
  - Inappropriate schedule of product administration [Recovered/Resolved]
  - Rash papular [Recovering/Resolving]

NARRATIVE: CASE EVENT DATE: 20181005
